FAERS Safety Report 6851560-2 (Version None)
Quarter: 2010Q3

REPORT INFORMATION
  Report Type: 
  Country: None (occurrence: None)
  Receive Date: 20100717
  Receipt Date: 20080118
  Transmission Date: 20110219
  Serious: No
  Sender: FDA-Public Use
  Company Number: US-PFIZER INC-2008007944

PATIENT
  Sex: Female

DRUGS (1)
  1. CHANTIX [Suspect]
     Dates: start: 20080114

REACTIONS (5)
  - ABNORMAL DREAMS [None]
  - CHILLS [None]
  - HEADACHE [None]
  - HYPERHIDROSIS [None]
  - PYREXIA [None]
